FAERS Safety Report 17852089 (Version 3)
Quarter: 2020Q3

REPORT INFORMATION
  Report Type: Spontaneous
  Country: JP (occurrence: JP)
  Receive Date: 20200602
  Receipt Date: 20200721
  Transmission Date: 20201103
  Serious: No
  Sender: FDA-Public Use
  Company Number: JP-JNJFOC-20200528545

PATIENT
  Age: 5 Decade
  Sex: Female
  Weight: 40 kg

DRUGS (1)
  1. SIMPONI [Suspect]
     Active Substance: GOLIMUMAB
     Indication: RHEUMATOID ARTHRITIS
     Dosage: STRENGTH: 50 MG/0.50 ML
     Route: 058

REACTIONS (6)
  - Injury associated with device [Recovered/Resolved]
  - Injection site pain [Recovering/Resolving]
  - Injection site haemorrhage [Unknown]
  - Needle issue [Recovered/Resolved]
  - Needle issue [Unknown]
  - Drug delivery system malfunction [Unknown]

NARRATIVE: CASE EVENT DATE: 20200516
